FAERS Safety Report 10090794 (Version 1)
Quarter: 2014Q2

REPORT INFORMATION
  Report Type: Spontaneous
  Country: US (occurrence: US)
  Receive Date: 20140421
  Receipt Date: 20140421
  Transmission Date: 20141212
  Serious: No
  Sender: FDA-Public Use
  Company Number: US-BAYER-2014-054009

PATIENT
  Sex: Female

DRUGS (2)
  1. ALEVE CAPLET [Suspect]
     Dosage: UNK
     Route: 048
  2. ALEVE LIQUID GELS [Suspect]
     Dosage: UNK
     Route: 048

REACTIONS (6)
  - Epistaxis [None]
  - Nasal discomfort [None]
  - Ear pruritus [None]
  - Epistaxis [None]
  - Nasal discomfort [None]
  - Ear pruritus [None]
